FAERS Safety Report 5685381-3 (Version None)
Quarter: 2008Q1

REPORT INFORMATION
  Report Type: 
  Country: None (occurrence: None)
  Receive Date: 20080328
  Receipt Date: 20080317
  Transmission Date: 20080703
  Serious: Yes (Other)
  Sender: FDA-Public Use
  Company Number: US-PFIZER INC-2008025545

PATIENT
  Sex: Male

DRUGS (4)
  1. LYRICA [Suspect]
  2. NEURONTIN [Suspect]
  3. CAPTOPRIL [Suspect]
  4. ALL OTHER THERAPEUTIC PRODUCTS [Suspect]

REACTIONS (2)
  - ANGIOEDEMA [None]
  - PSYCHOTIC DISORDER [None]
